FAERS Safety Report 4553367-8 (Version None)
Quarter: 2005Q1

REPORT INFORMATION
  Report Type: 
  Country: None (occurrence: None)
  Receive Date: 20050112
  Receipt Date: 20041224
  Transmission Date: 20050727
  Serious: Yes (Other)
  Sender: FDA-Public Use
  Company Number: FR_041205498

PATIENT
  Age: 19 Year
  Sex: Male

DRUGS (1)
  1. ZYPREXA [Suspect]
     Dosage: 10 MG DAY
     Dates: start: 20000101, end: 20000101

REACTIONS (3)
  - AGRANULOCYTOSIS [None]
  - BLOOD TESTOSTERONE INCREASED [None]
  - FULL BLOOD COUNT ABNORMAL [None]
